FAERS Safety Report 12079358 (Version 1)
Quarter: 2016Q1

REPORT INFORMATION
  Report Type: Spontaneous
  Country: HU (occurrence: HU)
  Receive Date: 20160216
  Receipt Date: 20160216
  Transmission Date: 20160526
  Serious: Yes (Death)
  Sender: FDA-Public Use
  Company Number: HU-ACTELION-A-CH2016-131148

PATIENT
  Age: 46 Year
  Sex: Female
  Weight: 35 kg

DRUGS (3)
  1. OPSUMIT [Suspect]
     Active Substance: MACITENTAN
     Indication: PULMONARY ARTERIAL HYPERTENSION
     Dosage: 10 MG, QD
     Route: 048
     Dates: start: 20151008, end: 20160205
  2. ADCIRCA [Concomitant]
     Active Substance: TADALAFIL
     Dosage: 40 MG, QD
     Dates: start: 20141127, end: 20160205
  3. REMODULIN [Concomitant]
     Active Substance: TREPROSTINIL
     Dosage: 60 NG/L, UNK
     Route: 058
     Dates: start: 20151202, end: 20160205

REACTIONS (2)
  - N-terminal prohormone brain natriuretic peptide increased [Fatal]
  - Cardiac failure [Fatal]

NARRATIVE: CASE EVENT DATE: 20160126
